FAERS Safety Report 15657646 (Version 1)
Quarter: 2018Q4

REPORT INFORMATION
  Report Type: Spontaneous
  Country: US (occurrence: US)
  Receive Date: 20181126
  Receipt Date: 20181126
  Transmission Date: 20190205
  Serious: No
  Sender: FDA-Public Use
  Company Number: US-NOVOPROD-599124

PATIENT
  Sex: Female

DRUGS (2)
  1. FLOMAX [Concomitant]
     Active Substance: TAMSULOSIN HYDROCHLORIDE
     Indication: PRODUCT USED FOR UNKNOWN INDICATION
     Dosage: AS NEEDED
     Route: 048
  2. NOVOLOG MIX 70/30 [Suspect]
     Active Substance: INSULIN ASPART
     Indication: TYPE 2 DIABETES MELLITUS
     Dosage: 180 UNITS, 40 UNITS UNK
     Route: 058
     Dates: start: 2012

REACTIONS (7)
  - Blood glucose decreased [Recovered/Resolved]
  - Memory impairment [Unknown]
  - Idiopathic urticaria [Not Recovered/Not Resolved]
  - Oedema [Unknown]
  - Extra dose administered [Recovered/Resolved]
  - Blood glucose increased [Recovered/Resolved]
  - Intentional underdose [Recovered/Resolved]
